FAERS Safety Report 20197027 (Version 1)
Quarter: 2021Q4

REPORT INFORMATION
  Report Type: Other
  Country: DE (occurrence: None)
  Receive Date: 20211217
  Receipt Date: 20211217
  Transmission Date: 20220303
  Serious: No
  Sender: FDA-Public Use
  Company Number: DE-ROCHE-2977636

PATIENT
  Age: 29 Year
  Sex: Female

DRUGS (1)
  1. OCRELIZUMAB [Suspect]
     Active Substance: OCRELIZUMAB
     Indication: Relapsing-remitting multiple sclerosis
     Route: 065
     Dates: start: 20210301

REACTIONS (3)
  - Influenza [Recovered/Resolved]
  - Injection site pain [Recovered/Resolved]
  - Vaccination complication [Recovered/Resolved]

NARRATIVE: CASE EVENT DATE: 20210702
